FAERS Safety Report 7843364 (Version 7)
Quarter: 2014Q1

REPORT INFORMATION
  Report Type: Spontaneous
  Country: US (occurrence: US)
  Receive Date: 20110307
  Receipt Date: 20140121
  Transmission Date: 20141002
  Serious: Yes (Hospitalization, Other)
  Sender: FDA-Public Use
  Company Number: US-BAYER-2011-020311

PATIENT
  Age: 30 Year
  Sex: Female
  Weight: 82 kg

DRUGS (3)
  1. YAZ [Suspect]
     Indication: CONTRACEPTION
     Dosage: UNK UNK, UNK
     Route: 048
     Dates: start: 20070827, end: 20090409
  2. YASMIN [Suspect]
  3. OXYCODONE/APAP [Concomitant]
     Dosage: UNK
     Dates: start: 20090311

REACTIONS (10)
  - Cholecystitis chronic [None]
  - Biliary dyskinesia [None]
  - Gallbladder disorder [None]
  - Gallbladder pain [None]
  - Gallbladder disorder [None]
  - Anxiety [None]
  - Post cholecystectomy syndrome [None]
  - Abdominal pain [None]
  - Injury [None]
  - Scar [None]
